FAERS Safety Report 19826193 (Version 1)
Quarter: 2021Q3

REPORT INFORMATION
  Report Type: Spontaneous
  Country: CN (occurrence: CN)
  Receive Date: 20210914
  Receipt Date: 20210914
  Transmission Date: 20211014
  Serious: Yes (Other)
  Sender: FDA-Public Use
  Company Number: CN-ROCHE-2853149

PATIENT
  Age: 60 Year
  Sex: Male

DRUGS (4)
  1. MABTHERA [Suspect]
     Active Substance: RITUXIMAB
     Indication: MARGINAL ZONE LYMPHOMA STAGE IV
     Route: 042
     Dates: start: 20210417
  2. GAZYVA [Suspect]
     Active Substance: OBINUTUZUMAB
     Indication: MARGINAL ZONE LYMPHOMA STAGE IV
     Route: 042
     Dates: start: 20210529
  3. BENDAMUSTINE [Concomitant]
     Active Substance: BENDAMUSTINE
     Indication: MARGINAL ZONE LYMPHOMA STAGE IV
     Dates: start: 20210417
  4. BENDAMUSTINE [Concomitant]
     Active Substance: BENDAMUSTINE
     Dates: start: 20210529

REACTIONS (2)
  - Infusion related reaction [Unknown]
  - Off label use [Unknown]
